FAERS Safety Report 9741252 (Version 1)
Quarter: 2013Q4

REPORT INFORMATION
  Report Type: Spontaneous
  Country: US (occurrence: US)
  Receive Date: 20131209
  Receipt Date: 20131209
  Transmission Date: 20140711
  Serious: No
  Sender: FDA-Public Use
  Company Number: US-BIOGENIDEC-2013BI099744

PATIENT
  Sex: Female

DRUGS (11)
  1. TECFIDERA [Suspect]
     Indication: MULTIPLE SCLEROSIS
     Route: 048
     Dates: start: 20130912
  2. ALBUTEROL SULFATE [Concomitant]
  3. B12- ACTIVE [Concomitant]
  4. BACLOFEN [Concomitant]
  5. CLONAZEPAM [Concomitant]
  6. LEVOTHROID [Concomitant]
  7. METFORMIN HCL [Concomitant]
  8. OMEPRAZOLE [Concomitant]
  9. PROZAC [Concomitant]
  10. TIZANIDINE HCL [Concomitant]
  11. ZANAFLEX [Concomitant]

REACTIONS (2)
  - Flushing [Unknown]
  - Nausea [Unknown]
